FAERS Safety Report 6211780-7 (Version None)
Quarter: 2009Q2

REPORT INFORMATION
  Report Type: 
  Country: None (occurrence: None)
  Receive Date: 20090528
  Receipt Date: 20090514
  Transmission Date: 20091009
  Serious: Yes (Hospitalization)
  Sender: FDA-Public Use
  Company Number: 2009EN000167

PATIENT
  Sex: Male
  Weight: 96.7 kg

DRUGS (9)
  1. EZN-2285 (SC-PEG E. COLI L-ASPARAGINASE) [Suspect]
     Indication: ACUTE LYMPHOCYTIC LEUKAEMIA
     Dosage: 5750 IU;X1;IV
     Route: 042
     Dates: start: 20090302, end: 20090302
  2. ONCASPAR [Suspect]
     Indication: ACUTE LYMPHOCYTIC LEUKAEMIA
     Dosage: 100 IU;X1;IV
     Route: 042
     Dates: start: 20090428, end: 20090428
  3. PREDNISONE [Suspect]
     Indication: ACUTE LYMPHOCYTIC LEUKAEMIA
     Dosage: 4170 MG;BID;PO
     Route: 048
     Dates: start: 20090227, end: 20090319
  4. SOLU-CORTEF [Suspect]
     Indication: ACUTE LYMPHOCYTIC LEUKAEMIA
     Dosage: IV
     Route: 042
     Dates: start: 20090227, end: 20090319
  5. CYCLOPHOSPHAMIDE [Concomitant]
  6. CYTARABINE [Concomitant]
  7. MERCAPTOPURINE [Concomitant]
  8. VINCRISTINE [Concomitant]
  9. BACTRIM [Concomitant]

REACTIONS (5)
  - HYPERSENSITIVITY [None]
  - HYPOTENSION [None]
  - MEDICATION ERROR [None]
  - OSTEONECROSIS [None]
  - PYREXIA [None]
